FAERS Safety Report 17106792 (Version 1)
Quarter: 2019Q4

REPORT INFORMATION
  Report Type: Spontaneous
  Country: US (occurrence: US)
  Receive Date: 20191108
  Receipt Date: 20191108
  Transmission Date: 20200122
  Serious: No
  Sender: FDA-Public Use
  Company Number: None

PATIENT
  Age: 56 Year
  Sex: Female

DRUGS (1)
  1. BOTOX [Suspect]
     Active Substance: ONABOTULINUMTOXINA
     Dosage: ?          OTHER FREQUENCY:UNKNOWN;OTHER ROUTE:UNKNOWN?
     Dates: start: 20171201

REACTIONS (2)
  - Product prescribing error [None]
  - Product dispensing error [None]

NARRATIVE: CASE EVENT DATE: 20191108
